FAERS Safety Report 8787914 (Version 2)
Quarter: 2012Q4

REPORT INFORMATION
  Report Type: 
  Country: US (occurrence: US)
  Receive Date: 20120914
  Receipt Date: 20121018
  Transmission Date: 20130627
  Serious: Yes (Death, Hospitalization, Other)
  Sender: FDA-Public Use
  Company Number: US-ROCHE-1126950

PATIENT
  Age: 82 Year
  Sex: Female

DRUGS (3)
  1. AVASTIN [Suspect]
     Indication: COLON CANCER
     Route: 065
     Dates: start: 20080915, end: 20081027
  2. OXALIPLATIN [Concomitant]
     Route: 065
     Dates: end: 20081027
  3. 5-FU [Concomitant]
     Route: 065
     Dates: end: 20081027

REACTIONS (6)
  - Death [Fatal]
  - Vomiting [Unknown]
  - Small intestinal obstruction [Unknown]
  - Blood potassium abnormal [Unknown]
  - Neuropathy peripheral [Unknown]
  - Abdominal pain [Unknown]
